FAERS Safety Report 13436382 (Version 2)
Quarter: 2017Q2

REPORT INFORMATION
  Report Type: Spontaneous
  Country: US (occurrence: US)
  Receive Date: 20170413
  Receipt Date: 20170501
  Transmission Date: 20170830
  Serious: Yes (Hospitalization, Other)
  Sender: FDA-Public Use
  Company Number: US-PFIZER INC-2017156645

PATIENT
  Age: 49 Year
  Sex: Male

DRUGS (2)
  1. AXITINIB [Suspect]
     Active Substance: AXITINIB
     Indication: ADRENAL GLAND CANCER
     Dosage: UNK
     Dates: start: 201408, end: 201507
  2. CRIZOTINIB [Suspect]
     Active Substance: CRIZOTINIB
     Indication: ADRENAL GLAND CANCER
     Dosage: UNK
     Dates: start: 201408, end: 201508

REACTIONS (15)
  - Diarrhoea [Unknown]
  - Liver function test increased [Unknown]
  - Nausea [Unknown]
  - Dyspnoea exertional [Unknown]
  - Insomnia [Unknown]
  - Vomiting [Unknown]
  - Proteinuria [Unknown]
  - Diabetes mellitus inadequate control [Unknown]
  - Product use in unapproved indication [Unknown]
  - Dyspnoea at rest [Unknown]
  - Fatigue [Unknown]
  - Tachycardia [Unknown]
  - Glycosuria [Unknown]
  - Back pain [Unknown]
  - Neoplasm progression [Unknown]
